FAERS Safety Report 12917868 (Version 1)
Quarter: 2016Q4

REPORT INFORMATION
  Report Type: Spontaneous
  Country: CA (occurrence: CA)
  Receive Date: 20161107
  Receipt Date: 20161107
  Transmission Date: 20170207
  Serious: Yes (Hospitalization, Other)
  Sender: FDA-Public Use
  Company Number: CA-ABBVIE-16K-028-1774740-00

PATIENT
  Sex: Female

DRUGS (42)
  1. HUMIRA [Suspect]
     Active Substance: ADALIMUMAB
     Indication: MOBILITY DECREASED
  2. VOLTAREN [Concomitant]
     Active Substance: DICLOFENAC SODIUM
     Indication: MOBILITY DECREASED
  3. NAPROSYN [Concomitant]
     Active Substance: NAPROXEN
     Indication: JOINT STIFFNESS
  4. TRAMADOL. [Concomitant]
     Active Substance: TRAMADOL
     Indication: PRODUCT USED FOR UNKNOWN INDICATION
  5. HUMIRA [Suspect]
     Active Substance: ADALIMUMAB
     Indication: PAIN
  6. ARAVA [Concomitant]
     Active Substance: LEFLUNOMIDE
     Indication: RHEUMATOID ARTHRITIS
  7. ASPIRIN. [Concomitant]
     Active Substance: ASPIRIN
     Indication: JOINT STIFFNESS
  8. VOLTAREN [Concomitant]
     Active Substance: DICLOFENAC SODIUM
     Indication: RHEUMATOID ARTHRITIS
  9. GOLD [Concomitant]
     Active Substance: GOLD
     Indication: RHEUMATOID ARTHRITIS
  10. METHOTREXATE SODIUM. [Concomitant]
     Active Substance: METHOTREXATE SODIUM
     Indication: JOINT STIFFNESS
  11. MOTRIN [Concomitant]
     Active Substance: IBUPROFEN
     Indication: JOINT STIFFNESS
  12. NAPROSYN [Concomitant]
     Active Substance: NAPROXEN
     Indication: RHEUMATOID ARTHRITIS
  13. ARAVA [Concomitant]
     Active Substance: LEFLUNOMIDE
     Indication: PAIN
  14. ARAVA [Concomitant]
     Active Substance: LEFLUNOMIDE
     Indication: JOINT STIFFNESS
  15. ENBREL [Concomitant]
     Active Substance: ETANERCEPT
     Indication: RHEUMATOID ARTHRITIS
  16. PLAQUENIL [Concomitant]
     Active Substance: HYDROXYCHLOROQUINE SULFATE
     Indication: JOINT STIFFNESS
  17. ENBREL [Concomitant]
     Active Substance: ETANERCEPT
     Indication: MOBILITY DECREASED
  18. GOLD [Concomitant]
     Active Substance: GOLD
     Indication: PAIN
  19. METHOTREXATE SODIUM. [Concomitant]
     Active Substance: METHOTREXATE SODIUM
     Indication: MOBILITY DECREASED
  20. NAPROSYN [Concomitant]
     Active Substance: NAPROXEN
     Indication: MOBILITY DECREASED
  21. HUMIRA [Suspect]
     Active Substance: ADALIMUMAB
     Indication: JOINT STIFFNESS
  22. ASPIRIN. [Concomitant]
     Active Substance: ASPIRIN
     Indication: PAIN
  23. VOLTAREN [Concomitant]
     Active Substance: DICLOFENAC SODIUM
     Indication: PAIN
  24. VOLTAREN [Concomitant]
     Active Substance: DICLOFENAC SODIUM
     Indication: JOINT STIFFNESS
  25. GOLD [Concomitant]
     Active Substance: GOLD
     Indication: JOINT STIFFNESS
  26. METHOTREXATE SODIUM. [Concomitant]
     Active Substance: METHOTREXATE SODIUM
     Indication: RHEUMATOID ARTHRITIS
  27. MOTRIN [Concomitant]
     Active Substance: IBUPROFEN
     Indication: MOBILITY DECREASED
  28. NAPROSYN [Concomitant]
     Active Substance: NAPROXEN
     Indication: PAIN
  29. HUMIRA [Suspect]
     Active Substance: ADALIMUMAB
     Indication: OFF LABEL USE
  30. ASPIRIN. [Concomitant]
     Active Substance: ASPIRIN
     Indication: RHEUMATOID ARTHRITIS
  31. ENBREL [Concomitant]
     Active Substance: ETANERCEPT
     Indication: PAIN
  32. ENBREL [Concomitant]
     Active Substance: ETANERCEPT
     Indication: JOINT STIFFNESS
  33. GOLD [Concomitant]
     Active Substance: GOLD
     Indication: MOBILITY DECREASED
  34. METHOTREXATE SODIUM. [Concomitant]
     Active Substance: METHOTREXATE SODIUM
     Indication: PAIN
  35. MOTRIN [Concomitant]
     Active Substance: IBUPROFEN
     Indication: RHEUMATOID ARTHRITIS
  36. MOTRIN [Concomitant]
     Active Substance: IBUPROFEN
     Indication: PAIN
  37. PLAQUENIL [Concomitant]
     Active Substance: HYDROXYCHLOROQUINE SULFATE
     Indication: PAIN
  38. PLAQUENIL [Concomitant]
     Active Substance: HYDROXYCHLOROQUINE SULFATE
     Indication: MOBILITY DECREASED
  39. ASPIRIN. [Concomitant]
     Active Substance: ASPIRIN
     Indication: MOBILITY DECREASED
  40. PLAQUENIL [Concomitant]
     Active Substance: HYDROXYCHLOROQUINE SULFATE
     Indication: RHEUMATOID ARTHRITIS
  41. HUMIRA [Suspect]
     Active Substance: ADALIMUMAB
     Indication: RHEUMATOID ARTHRITIS
     Route: 058
  42. ARAVA [Concomitant]
     Active Substance: LEFLUNOMIDE
     Indication: MOBILITY DECREASED

REACTIONS (13)
  - Abdominal discomfort [Unknown]
  - Dizziness [Unknown]
  - Headache [Unknown]
  - Pharyngitis [Unknown]
  - Vomiting [Unknown]
  - Weight decreased [Unknown]
  - Deafness [Unknown]
  - Decreased appetite [Unknown]
  - Off label use [Unknown]
  - Abdominal pain upper [Unknown]
  - Ear infection [Unknown]
  - Eating disorder [Unknown]
  - Nausea [Unknown]
